FAERS Safety Report 12583599 (Version 2)
Quarter: 2016Q3

REPORT INFORMATION
  Report Type: Spontaneous
  Country: CN (occurrence: CN)
  Receive Date: 20160722
  Receipt Date: 20160725
  Transmission Date: 20161109
  Serious: Yes (Hospitalization)
  Sender: FDA-Public Use
  Company Number: CN-JNJFOC-20160717411

PATIENT
  Age: 29 Year
  Sex: Female
  Weight: 40 kg

DRUGS (1)
  1. RISPERDAL [Suspect]
     Active Substance: RISPERIDONE
     Indication: SCHIZOPHRENIA
     Route: 048
     Dates: start: 20150215, end: 20150408

REACTIONS (1)
  - Extrapyramidal disorder [Recovered/Resolved with Sequelae]

NARRATIVE: CASE EVENT DATE: 20150312
